FAERS Safety Report 5800776-2 (Version None)
Quarter: 2008Q3

REPORT INFORMATION
  Report Type: 
  Country: None (occurrence: None)
  Receive Date: 20080701
  Receipt Date: 20080616
  Transmission Date: 20090109
  Serious: Yes (Hospitalization, Other)
  Sender: FDA-Public Use
  Company Number: A-CH2008-20504

PATIENT
  Age: 66 Year
  Sex: Male
  Weight: 78.3 kg

DRUGS (10)
  1. TRACLEER [Suspect]
     Indication: PULMONARY HYPERTENSION
     Dosage: 62.5 MG, BID, ORAL
     Route: 048
     Dates: start: 20080302, end: 20080429
  2. AMIODARONE HYDROCHLORIDE [Suspect]
  3. TORSEMIDE [Concomitant]
  4. XIPAMIDE (XIPAMIDE) [Concomitant]
  5. QUINAPRIL HCL [Concomitant]
  6. DIGITOXIN TAB [Concomitant]
  7. SIMVASTATIN [Concomitant]
  8. AMLODIPINE [Concomitant]
  9. ALLOPURINOL [Concomitant]
  10. PANTOPRAZOLE SODIUM [Concomitant]

REACTIONS (2)
  - HEPATITIS TOXIC [None]
  - HEPATOCELLULAR INJURY [None]
